FAERS Safety Report 8255389-2 (Version None)
Quarter: 2012Q2

REPORT INFORMATION
  Report Type: 
  Country: None (occurrence: None)
  Receive Date: 20120403
  Receipt Date: 20120326
  Transmission Date: 20120825
  Serious: Yes (Hospitalization)
  Sender: FDA-Public Use
  Company Number: US-ASTELLAS-2012US003130

PATIENT
  Sex: Female

DRUGS (4)
  1. BACTRIM [Concomitant]
     Indication: PRODUCT USED FOR UNKNOWN INDICATION
     Dosage: UNK
     Route: 065
  2. VESICARE [Suspect]
     Indication: PRODUCT USED FOR UNKNOWN INDICATION
     Dosage: UNK
     Route: 048
  3. TOVIAZ [Suspect]
     Indication: URINARY TRACT INFECTION
  4. TOVIAZ [Suspect]
     Indication: HYPERTONIC BLADDER
     Dosage: UNK
     Route: 065
     Dates: start: 20120303, end: 20120305

REACTIONS (6)
  - ADVERSE EVENT [None]
  - UNEVALUABLE EVENT [None]
  - NAUSEA [None]
  - ABDOMINAL PAIN UPPER [None]
  - POLLAKIURIA [None]
  - DRUG INEFFECTIVE [None]
